FAERS Safety Report 21925996 (Version 1)
Quarter: 2023Q1

REPORT INFORMATION
  Report Type: Spontaneous
  Country: BR (occurrence: BR)
  Receive Date: 20230130
  Receipt Date: 20230130
  Transmission Date: 20230417
  Serious: Yes (Other)
  Sender: FDA-Public Use
  Company Number: BR-MYLANLABS-2023M1009556

PATIENT
  Sex: Male
  Weight: 81 kg

DRUGS (5)
  1. CLOZAPINE [Suspect]
     Active Substance: CLOZAPINE
     Indication: Autism spectrum disorder
     Dosage: 25 MILLIGRAM, TID
     Route: 048
     Dates: start: 202301
  2. CLOZAPINE [Suspect]
     Active Substance: CLOZAPINE
     Dosage: 25 MILLIGRAM, QD
     Route: 048
  3. CLOZAPINE [Suspect]
     Active Substance: CLOZAPINE
     Dosage: 3.5 DOSAGE FORM, QD (3 TABLETS+ 1 TABLET IN HALF)
     Route: 048
  4. DEPAKOTE [Concomitant]
     Active Substance: DIVALPROEX SODIUM
     Indication: Autism spectrum disorder
     Dosage: UNK
     Route: 065
  5. DEPAKOTE [Concomitant]
     Active Substance: DIVALPROEX SODIUM
     Dosage: 2 DOSAGE FORM
     Route: 065

REACTIONS (9)
  - Intentional self-injury [Recovered/Resolved]
  - Screaming [Recovered/Resolved]
  - Nervousness [Recovered/Resolved]
  - Anxiety [Recovered/Resolved]
  - Irritability [Recovered/Resolved]
  - Behaviour disorder [Recovered/Resolved]
  - Weight increased [Unknown]
  - Restlessness [Recovered/Resolved]
  - Off label use [Not Recovered/Not Resolved]
